FAERS Safety Report 8822471 (Version 2)
Quarter: 2013Q2

REPORT INFORMATION
  Report Type: Report from Study
  Country: FR (occurrence: FR)
  Receive Date: 20121003
  Receipt Date: 20130503
  Transmission Date: 20140414
  Serious: No
  Sender: FDA-Public Use
  Company Number: FR-ASTELLAS-2012EU007230

PATIENT
  Sex: 0

DRUGS (2)
  1. SOLIFENACIN [Suspect]
     Indication: FOETAL EXPOSURE DURING PREGNANCY
     Dosage: 10 MG, UNKNOWN/D
     Route: 064
     Dates: start: 20120521, end: 20120705
  2. SUBUTEX [Concomitant]
     Indication: FOETAL EXPOSURE DURING PREGNANCY
     Dosage: 0.8 MG, UNKNOWN/D
     Route: 064
     Dates: start: 20120216, end: 20120705

REACTIONS (1)
  - No adverse event [Unknown]
